FAERS Safety Report 9279494 (Version 1)
Quarter: 2013Q2

REPORT INFORMATION
  Report Type: Report from Study
  Country: IT (occurrence: IT)
  Receive Date: 20130508
  Receipt Date: 20130508
  Transmission Date: 20140414
  Serious: Yes (Death, Congenital Anomaly)
  Sender: FDA-Public Use
  Company Number: PHHY2012IT086222

PATIENT
  Sex: 0

DRUGS (1)
  1. TEGRETOL [Suspect]
     Indication: EPILEPSY
     Dosage: 1000 MG, DAILY
     Route: 064

REACTIONS (4)
  - Stillbirth [Fatal]
  - Thymus disorder [Unknown]
  - Talipes [Unknown]
  - Foetal exposure during pregnancy [Unknown]
